FAERS Safety Report 8602326-4 (Version None)
Quarter: 2012Q3

REPORT INFORMATION
  Report Type: 
  Country: None (occurrence: None)
  Receive Date: 20120817
  Receipt Date: 20120814
  Transmission Date: 20120928
  Serious: Yes (Other)
  Sender: FDA-Public Use
  Company Number: DE-ROCHE-1102504

PATIENT

DRUGS (1)
  1. AVASTIN [Suspect]
     Indication: GLIOBLASTOMA

REACTIONS (1)
  - NEOPLASM MALIGNANT [None]
